FAERS Safety Report 15924988 (Version 1)
Quarter: 2019Q1

REPORT INFORMATION
  Report Type: Spontaneous
  Country: US (occurrence: US)
  Receive Date: 20190206
  Receipt Date: 20190206
  Transmission Date: 20190417
  Serious: Yes (Hospitalization)
  Sender: FDA-Public Use
  Company Number: None

PATIENT
  Age: 59 Year
  Sex: Female

DRUGS (13)
  1. TOBRAMYCIN. [Suspect]
     Active Substance: TOBRAMYCIN
     Indication: CHRONIC OBSTRUCTIVE PULMONARY DISEASE
     Route: 055
     Dates: start: 20190103
  2. LORAZEPAM. [Concomitant]
     Active Substance: LORAZEPAM
  3. MONTELUKAST [Concomitant]
     Active Substance: MONTELUKAST SODIUM
  4. NYSTATIN. [Concomitant]
     Active Substance: NYSTATIN
  5. PREDNISONE. [Concomitant]
     Active Substance: PREDNISONE
  6. DULERA [Concomitant]
     Active Substance: FORMOTEROL FUMARATE DIHYDRATE\MOMETASONE FUROATE
  7. SIMVASTATIN. [Concomitant]
     Active Substance: SIMVASTATIN
  8. DULOXETINE. [Concomitant]
     Active Substance: DULOXETINE
  9. NYSTATIN. [Concomitant]
     Active Substance: NYSTATIN
  10. METRONIDAZOL [Concomitant]
     Active Substance: METRONIDAZOLE
  11. FLUTICASONE. [Concomitant]
     Active Substance: FLUTICASONE
  12. MELOXICAM. [Concomitant]
     Active Substance: MELOXICAM
  13. PANTOPRAZOLE [Concomitant]
     Active Substance: PANTOPRAZOLE

REACTIONS (3)
  - Anosmia [None]
  - Ageusia [None]
  - Dysphonia [None]
